FAERS Safety Report 10235447 (Version 1)
Quarter: 2014Q2

REPORT INFORMATION
  Report Type: Report from Study
  Country: ES (occurrence: ES)
  Receive Date: 20140613
  Receipt Date: 20140613
  Transmission Date: 20141212
  Serious: Yes (Other)
  Sender: FDA-Public Use
  Company Number: ES-MYLANLABS-2014S1013446

PATIENT
  Age: 36 Month
  Sex: Female

DRUGS (1)
  1. IBUPROFEN [Suspect]
     Indication: SYNOVITIS
     Route: 048

REACTIONS (2)
  - Hepatotoxicity [Unknown]
  - Accidental exposure to product [Unknown]
